FAERS Safety Report 16095026 (Version 2)
Quarter: 2019Q1

REPORT INFORMATION
  Report Type: Spontaneous
  Country: FR (occurrence: FR)
  Receive Date: 20190320
  Receipt Date: 20190329
  Transmission Date: 20190418
  Serious: Yes (Hospitalization)
  Sender: FDA-Public Use
  Company Number: FR-SA-2006-01165

PATIENT
  Age: 73 Year
  Sex: Male

DRUGS (1)
  1. IMMUCYST [Suspect]
     Active Substance: BACILLUS CALMETTE-GUERIN SUBSTRAIN CONNAUGHT LIVE ANTIGEN
     Indication: BLADDER CANCER
     Dosage: DAILY DOSE TEXT : WEEKLY
     Route: 043
     Dates: start: 20060309, end: 20060413

REACTIONS (12)
  - Pyrexia [Recovered/Resolved]
  - Oliguria [Recovered/Resolved]
  - Anuria [Recovered/Resolved]
  - Pulmonary embolism [Recovered/Resolved]
  - Hepatocellular injury [Recovered/Resolved]
  - Hepatic enzyme increased [Recovered/Resolved]
  - Dyspnoea [Recovered/Resolved]
  - Thrombocytopenia [Recovered/Resolved]
  - Renal failure [Recovered/Resolved]
  - Fatigue [Recovered/Resolved]
  - Disseminated Bacillus Calmette-Guerin infection [Recovered/Resolved]
  - Asthenia [Recovered/Resolved]

NARRATIVE: CASE EVENT DATE: 20060404
